FAERS Safety Report 4485358-X (Version None)
Quarter: 2004Q4

REPORT INFORMATION
  Report Type: 
  Country: None (occurrence: None)
  Receive Date: 20041025
  Receipt Date: 20041025
  Transmission Date: 20050328
  Serious: Yes (Hospitalization)
  Sender: FDA-Public Use
  Company Number: None

PATIENT
  Sex: Male
  Weight: 97.5234 kg

DRUGS (9)
  1. GAMMAGARD S/D [Suspect]
     Indication: POLYNEUROPATHY IDIOPATHIC PROGRESSIVE
     Dosage: 50 GMD X 2D   AS ORDERED   INTRAVENOU
     Route: 042
     Dates: start: 20041012, end: 20041013
  2. TYLENOL [Concomitant]
  3. BENADRYL [Concomitant]
  4. BETAPACE [Concomitant]
  5. ECOTRIN [Concomitant]
  6. ATENELOL [Concomitant]
  7. VITAMIN E [Concomitant]
  8. NIACIN [Concomitant]
  9. VITAMIN C [Concomitant]

REACTIONS (6)
  - HYPOAESTHESIA [None]
  - INCOHERENT [None]
  - MONOPLEGIA [None]
  - MOVEMENT DISORDER [None]
  - SPEECH DISORDER [None]
  - TRANSIENT ISCHAEMIC ATTACK [None]
